FAERS Safety Report 13207300 (Version 1)
Quarter: 2017Q1

REPORT INFORMATION
  Report Type: Spontaneous
  Country: US (occurrence: US)
  Receive Date: 20170208
  Receipt Date: 20170208
  Transmission Date: 20170428
  Serious: No
  Sender: FDA-Public Use
  Company Number: None

PATIENT
  Age: 62 Year
  Sex: Female

DRUGS (1)
  1. LETAIRIS [Suspect]
     Active Substance: AMBRISENTAN
     Indication: PULMONARY ARTERIAL HYPERTENSION
     Route: 048
     Dates: start: 20161206, end: 20170111

REACTIONS (4)
  - Dyspnoea [None]
  - Irritable bowel syndrome [None]
  - Weight increased [None]
  - Oedema [None]

NARRATIVE: CASE EVENT DATE: 20170117
